FAERS Safety Report 5223656-2 (Version None)
Quarter: 2007Q1

REPORT INFORMATION
  Report Type: 
  Country: None (occurrence: None)
  Receive Date: 20070130
  Receipt Date: 20070116
  Transmission Date: 20070707
  Serious: Yes (Hospitalization)
  Sender: FDA-Public Use
  Company Number: ES-SANOFI-SYNTHELABO-A01200700765

PATIENT
  Age: 71 Year
  Sex: Male

DRUGS (8)
  1. MUCOSAN [Concomitant]
     Indication: DRUG USE FOR UNKNOWN INDICATION
     Route: 065
  2. FLUMIL [Concomitant]
     Indication: DRUG USE FOR UNKNOWN INDICATION
     Route: 048
  3. OPONAF [Concomitant]
     Indication: CONSTIPATION
     Dosage: UNK
     Route: 048
  4. APOCARD [Concomitant]
     Indication: DRUG USE FOR UNKNOWN INDICATION
     Dosage: UNK
     Route: 048
  5. DIGOXIN [Concomitant]
     Indication: DRUG USE FOR UNKNOWN INDICATION
     Dosage: UNK
     Route: 048
  6. TEVETENS [Concomitant]
     Indication: HYPERTENSION
     Dosage: UNK
     Route: 048
  7. CARDYL [Concomitant]
     Indication: DRUG USE FOR UNKNOWN INDICATION
     Dosage: UNK
     Route: 048
  8. PLAVIX [Suspect]
     Indication: ISCHAEMIC CEREBRAL INFARCTION
     Dosage: UNK
     Route: 048
     Dates: start: 20050301

REACTIONS (2)
  - DRUG INEFFECTIVE [None]
  - THROMBOSIS [None]
